FAERS Safety Report 18376866 (Version 1)
Quarter: 2020Q4

REPORT INFORMATION
  Report Type: Spontaneous
  Country: US (occurrence: US)
  Receive Date: 20201012
  Receipt Date: 20201012
  Transmission Date: 20210114
  Serious: Yes (Disabling)
  Sender: FDA-Public Use
  Company Number: None

PATIENT
  Age: 70 Year
  Sex: Female
  Weight: 81 kg

DRUGS (1)
  1. ALTEPLASE. [Suspect]
     Active Substance: ALTEPLASE
     Dosage: ?          OTHER FREQUENCY:ONCE;?
     Route: 040
     Dates: start: 20200913, end: 20200913

REACTIONS (7)
  - Cerebral haemorrhage [None]
  - Septic shock [None]
  - Brain oedema [None]
  - Intestinal ischaemia [None]
  - Embolism [None]
  - Cerebellar infarction [None]
  - Brain injury [None]

NARRATIVE: CASE EVENT DATE: 20200913
